FAERS Safety Report 9687216 (Version 3)
Quarter: 2013Q4

REPORT INFORMATION
  Report Type: Spontaneous
  Country: US (occurrence: US)
  Receive Date: 20131113
  Receipt Date: 20131230
  Transmission Date: 20140711
  Serious: Yes (Other)
  Sender: FDA-Public Use
  Company Number: US-AMGEN-USASP2013079294

PATIENT
  Age: 75 Year
  Sex: Male
  Weight: 52.15 kg

DRUGS (1)
  1. PROCRIT [Suspect]
     Indication: ANAEMIA OF CHRONIC DISEASE
     Dosage: 40000 UNIT, WEEKLY
     Route: 058
     Dates: start: 2013, end: 20131105

REACTIONS (5)
  - T-cell lymphoma [Unknown]
  - Leukaemia [Unknown]
  - Anaemia [Not Recovered/Not Resolved]
  - Aplasia pure red cell [Not Recovered/Not Resolved]
  - Therapeutic response decreased [Unknown]
